FAERS Safety Report 4642035-X (Version None)
Quarter: 2005Q2

REPORT INFORMATION
  Report Type: 
  Country: None (occurrence: None)
  Receive Date: 20050420
  Receipt Date: 20050406
  Transmission Date: 20051028
  Serious: Yes (Other)
  Sender: FDA-Public Use
  Company Number: 2003187333US

PATIENT
  Sex: Female
  Weight: 48.9885 kg

DRUGS (6)
  1. PROVERA [Suspect]
     Indication: HORMONE REPLACEMENT THERAPY
     Dosage: ORAL
     Route: 048
     Dates: start: 19960101, end: 20000101
  2. CONJUGATED ESTROGENS [Suspect]
     Indication: HORMONE REPLACEMENT THERAPY
     Dosage: ORAL
     Route: 048
     Dates: start: 19960101, end: 20000101
  3. PROVELLA-14 (ESTROGENS CONJUGATED, MEDROXYPROGESTERONE ACETATE) [Suspect]
     Indication: HORMONE REPLACEMENT THERAPY
     Dosage: ORAL
     Route: 048
     Dates: start: 19960101, end: 20000101
  4. CELECOXIB (CELECOXIB) [Concomitant]
  5. ALENDRONATE SODIUM [Concomitant]
  6. DIGOXIN [Concomitant]

REACTIONS (4)
  - ARTHRITIS [None]
  - INTESTINAL OBSTRUCTION [None]
  - OSTEOPOROSIS [None]
  - OVARIAN CANCER [None]
